FAERS Safety Report 4376163-3 (Version None)
Quarter: 2004Q2

REPORT INFORMATION
  Report Type: 
  Country: None (occurrence: None)
  Receive Date: 20040609
  Receipt Date: 20040609
  Transmission Date: 20050107
  Serious: No
  Sender: FDA-Public Use
  Company Number: None

PATIENT
  Age: 48 Year
  Sex: Male
  Weight: 87 kg

DRUGS (1)
  1. BACTRIM [Suspect]
     Indication: INFECTION
     Dosage: 800 MG/160 MG PO Q 12 H
     Route: 048
     Dates: start: 20040315, end: 20040320

REACTIONS (7)
  - ABDOMINAL PAIN [None]
  - DYSPNOEA [None]
  - LOOSE STOOLS [None]
  - NAUSEA [None]
  - RASH PRURITIC [None]
  - SWELLING FACE [None]
  - SWOLLEN TONGUE [None]
